FAERS Safety Report 18889258 (Version 1)
Quarter: 2021Q1

REPORT INFORMATION
  Report Type: Other
  Country: AU (occurrence: AU)
  Receive Date: 20210213
  Receipt Date: 20210213
  Transmission Date: 20210420
  Serious: Yes (Other)
  Sender: FDA-Public Use
  Company Number: AU-ROCHE-2762623

PATIENT

DRUGS (7)
  1. OXALIPLATIN. [Suspect]
     Active Substance: OXALIPLATIN
     Indication: COLORECTAL CANCER METASTATIC
     Route: 065
  2. CETUXIMAB. [Suspect]
     Active Substance: CETUXIMAB
     Indication: COLORECTAL CANCER METASTATIC
     Route: 065
  3. FLUOROURACIL. [Suspect]
     Active Substance: FLUOROURACIL
     Indication: COLORECTAL CANCER METASTATIC
     Route: 065
  4. TREBANANIB [Suspect]
     Active Substance: TREBANANIB
     Indication: COLORECTAL CANCER METASTATIC
     Route: 065
  5. IRINOTECAN [Suspect]
     Active Substance: IRINOTECAN
     Indication: COLORECTAL CANCER METASTATIC
     Route: 065
  6. BEVACIZUMAB. [Suspect]
     Active Substance: BEVACIZUMAB
     Indication: COLORECTAL CANCER METASTATIC
     Dosage: 3?WEEKLY
     Route: 065
  7. PANITUMUMAB [Suspect]
     Active Substance: PANITUMUMAB
     Indication: COLORECTAL CANCER METASTATIC
     Route: 065

REACTIONS (30)
  - Infection [Unknown]
  - Hydronephrosis [Unknown]
  - Blood creatinine increased [Unknown]
  - Rectal haemorrhage [Unknown]
  - Vaginal haemorrhage [Unknown]
  - Hypertension [Unknown]
  - Diarrhoea [Unknown]
  - Oedema peripheral [Unknown]
  - Anaemia [Unknown]
  - Impaired healing [Unknown]
  - Lower gastrointestinal haemorrhage [Unknown]
  - Myocardial ischaemia [Unknown]
  - Gastrointestinal obstruction [Unknown]
  - Arthralgia [Unknown]
  - Transient ischaemic attack [Unknown]
  - Hyperkalaemia [Unknown]
  - Gastrointestinal perforation [Unknown]
  - Dyspnoea [Unknown]
  - Fracture [Unknown]
  - Hyponatraemia [Unknown]
  - Proteinuria [Unknown]
  - Myocardial infarction [Unknown]
  - Arthritis [Unknown]
  - Haemorrhage intracranial [Unknown]
  - Cerebral ischaemia [Unknown]
  - Blood bilirubin increased [Unknown]
  - Angina pectoris [Unknown]
  - Gastrointestinal haemorrhage [Unknown]
  - Pulmonary embolism [Unknown]
  - Dizziness [Unknown]
